FAERS Safety Report 7552852-4 (Version None)
Quarter: 2011Q2

REPORT INFORMATION
  Report Type: 
  Country: None (occurrence: None)
  Receive Date: 20110616
  Receipt Date: 20110613
  Transmission Date: 20111010
  Serious: Yes (Other)
  Sender: FDA-Public Use
  Company Number: CL-PFIZER INC-2011106861

PATIENT
  Age: 32 Year
  Sex: Female

DRUGS (4)
  1. WELLBUTRIN [Concomitant]
     Dosage: 150 MG, UNK
     Route: 065
  2. GESTODENE AND ETHINYL ESTRADIOL [Concomitant]
     Dosage: UNK
     Route: 065
  3. GLAFORNIL [Concomitant]
     Dosage: 750 UNK, 2X/DAY
     Route: 065
  4. SERTRALINE HYDROCHLORIDE [Suspect]
     Indication: POSTPARTUM DEPRESSION
     Dosage: 100 MG, 1X/DAY
     Route: 065
     Dates: start: 20110105, end: 20110609

REACTIONS (1)
  - DISSOCIATION [None]
